FAERS Safety Report 8046700-6 (Version None)
Quarter: 2012Q1

REPORT INFORMATION
  Report Type: 
  Country: None (occurrence: None)
  Receive Date: 20120116
  Receipt Date: 20120105
  Transmission Date: 20120608
  Serious: Yes (Hospitalization)
  Sender: FDA-Public Use
  Company Number: JP-AMGEN-JPNSP2011042668

PATIENT
  Age: 77 Year
  Sex: Female
  Weight: 42.2 kg

DRUGS (13)
  1. FUROSEMIDE [Concomitant]
     Indication: HYPERTENSION
     Dosage: 10 MG, 1X/DAY
     Route: 048
     Dates: start: 20110722, end: 20110816
  2. PYDOXAL [Concomitant]
     Indication: PROPHYLAXIS
     Dosage: 10 MG, 3X/DAY
     Route: 048
     Dates: start: 20110408, end: 20110816
  3. RHEUMATREX [Suspect]
     Indication: RHEUMATOID ARTHRITIS
     Dosage: 4 MG, WEEKLY
     Route: 048
     Dates: start: 20081017, end: 20081211
  4. ENBREL [Suspect]
     Indication: RHEUMATOID ARTHRITIS
     Dosage: 25 MG, WEEKLY
     Route: 058
     Dates: start: 20110408, end: 20110816
  5. RHEUMATREX [Suspect]
     Dosage: 4 MG, WEEKLY
     Route: 048
     Dates: start: 20110722, end: 20110816
  6. PRELONE [Concomitant]
     Indication: RHEUMATOID ARTHRITIS
     Dosage: 1 MG, 4X/DAY
     Route: 048
     Dates: start: 20080620, end: 20110816
  7. CANDESARTAN CILEXETIL [Concomitant]
     Indication: HYPERTENSION
     Dosage: 2 MG, 1X/DAY
     Dates: start: 20100122
  8. RHEUMATREX [Suspect]
     Dosage: 6 MG, WEEKLY
     Route: 048
     Dates: start: 20081212, end: 20110721
  9. OMEPRAZOLE [Concomitant]
     Indication: PROPHYLAXIS
     Dosage: 20 MG, 1X/DAY
     Route: 048
     Dates: start: 20080502
  10. FOLIC ACID [Concomitant]
     Indication: PROPHYLAXIS
     Dosage: 5 MG, WEEKLY
     Route: 048
     Dates: start: 20081017, end: 20110816
  11. ONE-ALPHA [Concomitant]
     Indication: OSTEOPOROSIS
     Dosage: 0.5 UG, 1X/DAY
     Route: 048
     Dates: start: 20101210, end: 20110816
  12. ISONIAZID [Concomitant]
     Indication: PULMONARY TUBERCULOSIS
     Dosage: 100 MG, 2X/DAY
     Route: 048
     Dates: start: 20110408, end: 20110816
  13. BERAPROST SODIUM [Concomitant]
     Indication: PULMONARY ARTERIAL HYPERTENSION
     Dosage: 120 UG, 1X/DAY
     Dates: start: 20110211

REACTIONS (2)
  - RESPIRATORY FAILURE [None]
  - PNEUMOCYSTIS JIROVECI PNEUMONIA [None]
